FAERS Safety Report 8637903 (Version 2)
Quarter: 2013Q1

REPORT INFORMATION
  Report Type: Spontaneous
  Country: US (occurrence: US)
  Receive Date: 20120627
  Receipt Date: 20130307
  Transmission Date: 20140127
  Serious: Yes (Other)
  Sender: FDA-Public Use
  Company Number: US-ASTRAZENECA-2012SE25421

PATIENT
  Age: 75 Year
  Sex: Female

DRUGS (1)
  1. METOPROLOL SUCCINATE [Suspect]
     Dosage: GENERIC
     Route: 048

REACTIONS (11)
  - Ejection fraction decreased [Unknown]
  - Neoplasm malignant [Unknown]
  - Cardiomyopathy [Unknown]
  - Cardiac failure congestive [Unknown]
  - Cardiac disorder [Unknown]
  - Mental disorder [Unknown]
  - Drug intolerance [Unknown]
  - Neuropathy peripheral [Unknown]
  - Diabetes mellitus [Unknown]
  - Dyspnoea [Unknown]
  - Drug dose omission [Unknown]
